FAERS Safety Report 6997126-5 (Version None)
Quarter: 2010Q3

REPORT INFORMATION
  Report Type: 
  Country: None (occurrence: None)
  Receive Date: 20100918
  Receipt Date: 20090917
  Transmission Date: 20110219
  Serious: No
  Sender: FDA-Public Use
  Company Number: US-WYE-H11075509

PATIENT
  Age: 65 Year
  Sex: Female

DRUGS (12)
  1. PRISTIQ [Suspect]
     Indication: BIPOLAR DISORDER
     Route: 048
     Dates: start: 20090903
  2. RISPERDAL [Concomitant]
  3. GABAPENTIN [Concomitant]
  4. LEVOTHROID [Concomitant]
  5. EFFEXOR XR [Suspect]
     Indication: BIPOLAR DISORDER
     Dosage: START DATE UNKNOWN 300 MG/DAY, RECENTLY TAPEREDTO 150 MG/DAY
     Route: 048
  6. LANTUS [Concomitant]
  7. SIMVASTATIN [Concomitant]
  8. PRILOSEC [Concomitant]
  9. ACETYLSALICYLIC ACID [Concomitant]
  10. CALCIUM [Concomitant]
  11. LAMICTAL [Concomitant]
  12. ACTOS [Concomitant]

REACTIONS (2)
  - CONDITION AGGRAVATED [None]
  - INTRAOCULAR PRESSURE INCREASED [None]
